FAERS Safety Report 4409438-X (Version None)
Quarter: 2004Q3

REPORT INFORMATION
  Report Type: 
  Country: None (occurrence: None)
  Receive Date: 20040727
  Receipt Date: 20040727
  Transmission Date: 20050211
  Serious: No
  Sender: FDA-Public Use
  Company Number: None

PATIENT
  Age: 38 Year
  Sex: Female

DRUGS (4)
  1. ADRIAMYCIN PFS [Suspect]
     Dosage: 240 MG/M2
     Dates: start: 19991127, end: 19990507
  2. CYTOXAN [Suspect]
     Dosage: 2400 MG/M2
     Dates: start: 19991127, end: 19990507
  3. TAXOL [Suspect]
     Dosage: 600 MG/M2
     Dates: start: 19991127, end: 19990507
  4. NEUPOGEN [Suspect]
     Dosage: 24,080 MCG (5MCG/KG) X 56 TOTAL DAYS
     Dates: start: 19991127, end: 19990507

REACTIONS (2)
  - DISEASE RECURRENCE [None]
  - MYELODYSPLASTIC SYNDROME [None]
